FAERS Safety Report 24151508 (Version 1)
Quarter: 2024Q3

REPORT INFORMATION
  Report Type: Spontaneous
  Country: US (occurrence: US)
  Receive Date: 20240730
  Receipt Date: 20240730
  Transmission Date: 20241016
  Serious: No
  Sender: PERRIGO
  Company Number: US-PERRIGO-23US009209

PATIENT
  Age: 72 Year
  Sex: Female
  Weight: 58.957 kg

DRUGS (7)
  1. LORATADINE [Suspect]
     Active Substance: LORATADINE
     Indication: Seasonal allergy
     Dosage: 10 MG, PRN
     Route: 048
     Dates: start: 20230720, end: 20230816
  2. LORATADINE [Suspect]
     Active Substance: LORATADINE
     Indication: Sneezing
  3. LORATADINE [Suspect]
     Active Substance: LORATADINE
     Indication: Cough
  4. LORATADINE [Suspect]
     Active Substance: LORATADINE
     Indication: Rhinorrhoea
  5. LORATADINE [Suspect]
     Active Substance: LORATADINE
     Indication: Eye pruritus
  6. MONTELUKAST [Concomitant]
     Active Substance: MONTELUKAST SODIUM
     Indication: Seasonal allergy
     Dosage: UNK
     Route: 065
     Dates: start: 20230720
  7. ATORVASTATIN [Concomitant]
     Active Substance: ATORVASTATIN
     Indication: Blood cholesterol increased
     Dosage: UNK
     Route: 065

REACTIONS (2)
  - Condition aggravated [Not Recovered/Not Resolved]
  - Drug ineffective for unapproved indication [Unknown]

NARRATIVE: CASE EVENT DATE: 20230720
